FAERS Safety Report 6173114-6 (Version None)
Quarter: 2009Q2

REPORT INFORMATION
  Report Type: 
  Country: None (occurrence: None)
  Receive Date: 20090430
  Receipt Date: 20090420
  Transmission Date: 20091009
  Serious: Yes (Hospitalization, Other)
  Sender: FDA-Public Use
  Company Number: BE-PFIZER INC-2009202187

PATIENT

DRUGS (5)
  1. VFEND [Suspect]
     Indication: ASPERGILLOSIS
     Dosage: 100 MG, 2X/DAY
     Route: 048
     Dates: start: 20090410
  2. VFEND [Suspect]
     Dosage: UNK
     Route: 048
     Dates: start: 20090222, end: 20090304
  3. VFEND [Suspect]
     Dosage: 200 MG, 2X/DAY
     Dates: start: 20090217, end: 20090219
  4. VFEND [Suspect]
     Route: 042
     Dates: start: 20090220, end: 20090221
  5. VFEND [Suspect]
     Route: 048
     Dates: start: 20090222, end: 20090304

REACTIONS (4)
  - ANOREXIA [None]
  - DYSPEPSIA [None]
  - HEPATOTOXICITY [None]
  - SKIN IRRITATION [None]
